FAERS Safety Report 8793367 (Version 3)
Quarter: 2012Q4

REPORT INFORMATION
  Report Type: 
  Country: GB (occurrence: GB)
  Receive Date: 20120918
  Receipt Date: 20121026
  Transmission Date: 20130627
  Serious: Yes (Hospitalization, Other)
  Sender: FDA-Public Use
  Company Number: GB-JNJFOC-20120906262

PATIENT
  Age: 4 None
  Sex: Female

DRUGS (4)
  1. PREZISTA [Suspect]
     Indication: HIV INFECTION
     Route: 048
  2. HEROIN [Suspect]
     Indication: SUBSTANCE USE
     Route: 065
  3. METHADONE [Suspect]
     Indication: SUBSTANCE USE
     Route: 065
  4. CANNABIS [Suspect]
     Indication: SUBSTANCE USE
     Route: 065

REACTIONS (3)
  - Acute hepatitis C [Unknown]
  - Exposure during pregnancy [Unknown]
  - Substance use [Unknown]
